FAERS Safety Report 7357925-7 (Version None)
Quarter: 2011Q1

REPORT INFORMATION
  Report Type: 
  Country: None (occurrence: None)
  Receive Date: 20110225
  Receipt Date: 20101104
  Transmission Date: 20110831
  Serious: No
  Sender: FDA-Public Use
  Company Number: 317882

PATIENT
  Age: 65 Year
  Sex: Female

DRUGS (3)
  1. PROPYLTHIOURACIL [Concomitant]
  2. VICTOZA [Suspect]
     Indication: TYPE 2 DIABETES MELLITUS
     Dosage: 0.6 MG, QD, SUBCUTANEOUS
     Route: 058
     Dates: start: 20101104, end: 20101108
  3. VICTOZA [Suspect]
     Indication: WEIGHT INCREASED
     Dosage: 0.6 MG, QD, SUBCUTANEOUS
     Route: 058
     Dates: start: 20101104, end: 20101108

REACTIONS (1)
  - FATIGUE [None]
